FAERS Safety Report 7510638-0 (Version None)
Quarter: 2011Q2

REPORT INFORMATION
  Report Type: 
  Country: None (occurrence: None)
  Receive Date: 20110530
  Receipt Date: 20110517
  Transmission Date: 20111010
  Serious: Yes (Hospitalization)
  Sender: FDA-Public Use
  Company Number: PHHY2011TW44193

PATIENT
  Age: 87 Year
  Sex: Female

DRUGS (1)
  1. ZOLEDRONIC ACID [Suspect]
     Indication: OSTEOPOROSIS POSTMENOPAUSAL
     Dosage: 5 MG/100 ML, ONCE IN AN YEAR
     Dates: start: 20110427

REACTIONS (2)
  - DECREASED APPETITE [None]
  - ABDOMINAL DISCOMFORT [None]
